FAERS Safety Report 7174552-5 (Version None)
Quarter: 2010Q4

REPORT INFORMATION
  Report Type: 
  Country: None (occurrence: None)
  Receive Date: 20101219
  Receipt Date: 20100331
  Transmission Date: 20110411
  Serious: No
  Sender: FDA-Public Use
  Company Number: US-AMGEN-KDL402992

PATIENT

DRUGS (8)
  1. ENBREL [Suspect]
     Indication: PRODUCT USED FOR UNKNOWN INDICATION
     Dosage: 50 MG, 2 TIMES/WK
     Route: 058
  2. NIASPAN [Concomitant]
     Dosage: 500 MG, UNK
  3. TRAZODONE HCL [Concomitant]
     Dosage: 50 MG, UNK
  4. FOLIC ACID [Concomitant]
     Dosage: 1 MG, UNK
  5. ESOMEPRAZOLE MAGNESIUM [Concomitant]
     Dosage: 40 MG, UNK
  6. ROSUVASTATIN CALCIUM [Concomitant]
     Dosage: 10 MG, UNK
  7. OXYCODONE HYDROCHLORIDE [Concomitant]
     Dosage: UNK UNK, UNK
  8. ASPIRIN [Concomitant]
     Dosage: 81 MG, UNK

REACTIONS (1)
  - SINUSITIS [None]
